FAERS Safety Report 4979569-4 (Version None)
Quarter: 2006Q2

REPORT INFORMATION
  Report Type: 
  Country: None (occurrence: None)
  Receive Date: 20060421
  Receipt Date: 20060214
  Transmission Date: 20061013
  Serious: Yes (Other)
  Sender: FDA-Public Use
  Company Number: JP-ROCHE-439015

PATIENT
  Age: 55 Year
  Sex: Female
  Weight: 42 kg

DRUGS (8)
  1. TAMIFLU [Suspect]
     Route: 048
     Dates: start: 20060201, end: 20060202
  2. BROCIN [Concomitant]
     Route: 048
     Dates: start: 20060201, end: 20060204
  3. MEDICON [Concomitant]
     Route: 048
     Dates: start: 20060201, end: 20060204
  4. CALONAL [Concomitant]
     Route: 048
     Dates: start: 20060201, end: 20060202
  5. RINGER'S INJECTION [Concomitant]
     Indication: VOMITING
     Dosage: DRUG REPORTED AS MALTOSE-LACTATED RINGER'S INJ. ^FUSO^. GIVEN FOR THE EVENTS OF VOMITING AND ABDOMI+
     Dates: start: 20060202, end: 20060202
  6. THIAMINE HCL [Concomitant]
     Indication: VOMITING
     Dosage: DRUG REPORTED AS THIAMINE HYDROCHLORIDE (VITANON GREEN). TREATMENT FOR VOMITING AND ABDOMINAL PAIN.
     Dates: start: 20060202, end: 20060202
  7. ASCORBIC ACID [Concomitant]
     Indication: VOMITING
     Dosage: DRUG REPORTED AS VITAMIN C ^FUSO^. TREATMENT FOR VOMITING AND ABDOMINAL PAIN.
     Dates: start: 20060202, end: 20060202
  8. NAUZELIN [Concomitant]
     Indication: VOMITING
     Dosage: TREATMENT FOR VOMITING AND ABDOMINAL PAIN.
     Dates: start: 20060202, end: 20060202

REACTIONS (4)
  - ABDOMINAL PAIN [None]
  - HAEMATURIA [None]
  - INTESTINAL HAEMORRHAGE [None]
  - VOMITING [None]
